FAERS Safety Report 8817193 (Version 1)
Quarter: 2012Q4

REPORT INFORMATION
  Report Type: 
  Country: US (occurrence: US)
  Receive Date: 20121004
  Receipt Date: 20121004
  Transmission Date: 20130627
  Serious: No
  Sender: FDA-Public Use
  Company Number: US-ASTRAZENECA-2012SE73049

PATIENT
  Age: 67 Year
  Sex: Male
  Weight: 113.4 kg

DRUGS (4)
  1. METOPROLOL SUCCINATE [Suspect]
     Indication: HYPERTENSION
     Route: 048
     Dates: end: 201205
  2. METOPROLOL SUCCINATE [Suspect]
     Indication: HYPERTENSION
     Route: 048
     Dates: start: 201205
  3. LOSARTAN [Concomitant]
  4. AMLODIPIN [Concomitant]

REACTIONS (2)
  - Blood pressure increased [Unknown]
  - Drug ineffective [Unknown]
